FAERS Safety Report 20836776 (Version 5)
Quarter: 2023Q1

REPORT INFORMATION
  Report Type: Report from Study
  Country: US (occurrence: US)
  Receive Date: 20220517
  Receipt Date: 20230316
  Transmission Date: 20230418
  Serious: Yes (Other)
  Sender: FDA-Public Use
  Company Number: US-ARGENX-2022-ARGX-US000629

PATIENT

DRUGS (7)
  1. VYVGART [Suspect]
     Active Substance: EFGARTIGIMOD ALFA-FCAB
     Indication: Myasthenia gravis
     Dosage: 10 MG/KG
     Route: 042
     Dates: start: 20220413
  2. VYVGART [Suspect]
     Active Substance: EFGARTIGIMOD ALFA-FCAB
     Dosage: 10 MG/KG
     Dates: start: 20220420
  3. SOLIRIS [Concomitant]
     Active Substance: ECULIZUMAB
     Indication: Product used for unknown indication
  4. HUMAN IMMUNOGLOBULIN G [Concomitant]
     Active Substance: HUMAN IMMUNOGLOBULIN G
     Indication: Product used for unknown indication
  5. PREDNISONE [Concomitant]
     Active Substance: PREDNISONE
     Indication: Product used for unknown indication
     Dosage: 35 MG
  6. PREDNISONE [Concomitant]
     Active Substance: PREDNISONE
     Indication: Product used for unknown indication
  7. IRON [Concomitant]
     Active Substance: IRON
     Indication: Product used for unknown indication

REACTIONS (22)
  - Hypertensive crisis [Recovered/Resolved]
  - Pericardial effusion [Not Recovered/Not Resolved]
  - Headache [Unknown]
  - Fatigue [Unknown]
  - Herpes zoster [Unknown]
  - White blood cell count decreased [Unknown]
  - Nervousness [Unknown]
  - Anxiety [Unknown]
  - Pollakiuria [Unknown]
  - Red blood cell count decreased [Unknown]
  - Platelet disorder [Unknown]
  - Back pain [Unknown]
  - Muscle spasms [Unknown]
  - Red blood cell abnormality [Unknown]
  - Blood glucose abnormal [Unknown]
  - Blood urine present [Unknown]
  - Abdominal pain [Recovering/Resolving]
  - Vision blurred [Unknown]
  - Disorientation [Unknown]
  - Systemic lupus erythematosus [Not Recovered/Not Resolved]
  - Myasthenia gravis [Not Recovered/Not Resolved]
  - Back disorder [Unknown]

NARRATIVE: CASE EVENT DATE: 20220512
